FAERS Safety Report 23102627 (Version 1)
Quarter: 2023Q4

REPORT INFORMATION
  Report Type: Report from Study
  Country: CA (occurrence: CA)
  Receive Date: 20231025
  Receipt Date: 20231025
  Transmission Date: 20240110
  Serious: Yes (Death, Hospitalization)
  Sender: FDA-Public Use
  Company Number: CA-drreddys-CLI/CAN/23/0163186

PATIENT
  Age: 47 Year
  Sex: Female

DRUGS (1)
  1. AZACITIDINE [Suspect]
     Active Substance: AZACITIDINE
     Indication: Myelodysplastic syndrome
     Dosage: 75MG/M2 FOR 7 DAYS EVERY 28 DAYS

REACTIONS (2)
  - Death [Fatal]
  - Bacterial infection [Unknown]

NARRATIVE: CASE EVENT DATE: 20230325
